FAERS Safety Report 6800872-7 (Version None)
Quarter: 2010Q2

REPORT INFORMATION
  Report Type: 
  Country: None (occurrence: None)
  Receive Date: 20100624
  Receipt Date: 20100611
  Transmission Date: 20101027
  Serious: Yes (Hospitalization)
  Sender: FDA-Public Use
  Company Number: 2010SP032890

PATIENT
  Age: 24 Year
  Sex: Female

DRUGS (5)
  1. NUVARING [Suspect]
     Indication: DRUG USE FOR UNKNOWN INDICATION
  2. ELAVIL [Suspect]
     Dosage: 30 MG;QD;PO
     Route: 048
  3. PROZAC [Suspect]
     Dosage: 40 MG;QD;PO
     Route: 048
  4. BLINDED VACCINE (NOT OTHERWISE SPECIFIED) [Suspect]
     Route: 030
  5. WELLBUTRIN [Suspect]
     Dosage: 300 MG;QD;PO

REACTIONS (4)
  - ABDOMINAL PAIN UPPER [None]
  - BILE DUCT STONE [None]
  - CHOLECYSTITIS ACUTE [None]
  - HYPERBILIRUBINAEMIA [None]
